FAERS Safety Report 6645203-0 (Version None)
Quarter: 2010Q1

REPORT INFORMATION
  Report Type: 
  Country: None (occurrence: None)
  Receive Date: 20100322
  Receipt Date: 20100312
  Transmission Date: 20100710
  Serious: Yes (Hospitalization)
  Sender: FDA-Public Use
  Company Number: US-SANOFI-AVENTIS-2010SA015425

PATIENT
  Age: 74 Year
  Sex: Male
  Weight: 63 kg

DRUGS (7)
  1. PLAVIX [Suspect]
     Route: 048
     Dates: start: 20091001
  2. PLAVIX [Suspect]
     Dosage: 1/2 TABLET DAILY
     Route: 048
     Dates: end: 20100112
  3. ABACAVIR [Concomitant]
  4. NEVIRAPINE [Concomitant]
  5. FUROSEMIDE [Concomitant]
  6. CALCIUM [Concomitant]
  7. POTASSIUM [Concomitant]

REACTIONS (2)
  - THROMBOSIS [None]
  - TREATMENT NONCOMPLIANCE [None]
